FAERS Safety Report 7217212-4 (Version None)
Quarter: 2011Q1

REPORT INFORMATION
  Report Type: 
  Country: None (occurrence: None)
  Receive Date: 20110110
  Receipt Date: 20101208
  Transmission Date: 20110831
  Serious: No
  Sender: FDA-Public Use
  Company Number: US-JNJFOC-20100903417

PATIENT
  Age: 49 Year
  Sex: Female
  Weight: 118 kg

DRUGS (3)
  1. VITAMIN B-12 [Concomitant]
     Indication: MEDICAL DIET
  2. COGENTIN [Concomitant]
     Indication: EXTRAPYRAMIDAL DISORDER
  3. INVEGA SUSTENNA [Suspect]
     Indication: SCHIZOPHRENIA
     Route: 030

REACTIONS (2)
  - TREATMENT NONCOMPLIANCE [None]
  - AGGRESSION [None]
